FAERS Safety Report 7927495-0 (Version None)
Quarter: 2011Q4

REPORT INFORMATION
  Report Type: 
  Country: None (occurrence: None)
  Receive Date: 20111118
  Receipt Date: 20111115
  Transmission Date: 20120403
  Serious: Yes (Other)
  Sender: FDA-Public Use
  Company Number: DE-AMGEN-DEUSP2011055594

PATIENT
  Sex: Female

DRUGS (7)
  1. EPIRUBICIN [Suspect]
     Indication: BREAST CANCER
     Dosage: UNK
     Route: 042
     Dates: start: 20110906, end: 20111018
  2. CYCLOPHOSPHAMIDE [Suspect]
     Indication: BREAST CANCER
     Dosage: UNK
     Route: 042
     Dates: start: 20110906, end: 20111018
  3. FLUOROURACIL [Suspect]
     Indication: BREAST CANCER
     Dosage: UNK
     Route: 042
     Dates: start: 20110906, end: 20111018
  4. MESNA [Concomitant]
     Route: 042
  5. NEULASTA [Suspect]
     Indication: CHEMOTHERAPY
     Dosage: 6 MG, UNK
     Route: 058
     Dates: start: 20111019
  6. DEXAMETHASONE [Concomitant]
     Route: 042
  7. KEVATRIL [Concomitant]
     Route: 042

REACTIONS (3)
  - LEUKOPENIA [None]
  - NEUTROPENIA [None]
  - DRUG INEFFECTIVE [None]
